FAERS Safety Report 7480898-3 (Version None)
Quarter: 2011Q2

REPORT INFORMATION
  Report Type: 
  Country: None (occurrence: None)
  Receive Date: 20110506
  Receipt Date: 20110419
  Transmission Date: 20111010
  Serious: Yes (Hospitalization)
  Sender: FDA-Public Use
  Company Number: UCM201104-000006

PATIENT
  Age: 51 Year
  Sex: Male

DRUGS (9)
  1. BISOPROLOL FURAMATE(BISOPROLOL FURAMATE) (BISPROLOL FURAMATE) [Suspect]
  2. INDAPAMIDE [Suspect]
     Dosage: 50 MG/DAY
  3. ISOSORBIDE MONONITRATE [Suspect]
     Dosage: 50 MG/DAY
  4. SIMVASTATIN [Concomitant]
     Dosage: 20 MG/DAY
  5. SPIRONOLACTONE [Suspect]
     Dosage: 50 MG/DAY
  6. AMLODIPINE [Suspect]
     Dosage: 50 MG/DAY
  7. ASPIRIN [Suspect]
     Dosage: 50 MG/DAY
  8. INSULIN [Suspect]
     Dosage: 50 MG/DAY
  9. QUINAPRIL [Suspect]
     Dosage: 20 MG TWICE DAILY

REACTIONS (9)
  - SYNCOPE [None]
  - DIARRHOEA [None]
  - MITRAL VALVE INCOMPETENCE [None]
  - CONFUSIONAL STATE [None]
  - TRICUSPID VALVE INCOMPETENCE [None]
  - RHABDOMYOLYSIS [None]
  - DEHYDRATION [None]
  - HYPERKALAEMIA [None]
  - ATRIOVENTRICULAR BLOCK COMPLETE [None]
